FAERS Safety Report 4931166-2 (Version None)
Quarter: 2006Q1

REPORT INFORMATION
  Report Type: 
  Country: None (occurrence: None)
  Receive Date: 20060302
  Receipt Date: 20060228
  Transmission Date: 20060701
  Serious: Yes (Death, Life-Threatening, Disabling)
  Sender: FDA-Public Use
  Company Number: US-MERCK-0603USA00154

PATIENT
  Sex: Female

DRUGS (2)
  1. FOSAMAX [Suspect]
     Route: 048
  2. [THERAPY UNSPECIFIED] [Concomitant]
     Route: 065

REACTIONS (3)
  - DEATH [None]
  - OESOPHAGEAL PERFORATION [None]
  - SEPSIS [None]
